FAERS Safety Report 4832378-9 (Version None)
Quarter: 2005Q4

REPORT INFORMATION
  Report Type: 
  Country: None (occurrence: None)
  Receive Date: 20051117
  Receipt Date: 20051104
  Transmission Date: 20060501
  Serious: Yes (Other)
  Sender: FDA-Public Use
  Company Number: USA0509109278

PATIENT
  Age: 53 Year
  Sex: Male

DRUGS (3)
  1. CIALIS [Suspect]
     Indication: ERECTILE DYSFUNCTION
     Dosage: 10 MG
  2. SERZONE [Concomitant]
  3. ZOCOR [Concomitant]

REACTIONS (1)
  - BLINDNESS TRANSIENT [None]
